FAERS Safety Report 10494396 (Version 1)
Quarter: 2014Q4

REPORT INFORMATION
  Report Type: Spontaneous
  Country: FR (occurrence: None)
  Receive Date: 20141001
  Receipt Date: 20141001
  Transmission Date: 20150528
  Serious: Yes (Hospitalization, Other)
  Sender: FDA-Public Use
  Company Number: ADR-2014-01770

PATIENT
  Age: 58 Year
  Sex: Female

DRUGS (8)
  1. LIORESAL [Suspect]
     Active Substance: BACLOFEN
     Indication: ALCOHOL DETOXIFICATION
     Route: 048
     Dates: start: 20140801
  2. FOLIC ACID. [Concomitant]
     Active Substance: FOLIC ACID
  3. L-THYROXIN [Concomitant]
     Active Substance: LEVOTHYROXINE SODIUM
  4. ESOMEPRAZOL/ESOMEPRAZOLE [Concomitant]
  5. VITAMIN B 6 [Concomitant]
  6. VITAMIN B [Concomitant]
     Active Substance: VITAMIN B
  7. PERINDOPRIL [Concomitant]
     Active Substance: PERINDOPRIL
  8. FUROSEMIDE. [Concomitant]
     Active Substance: FUROSEMIDE

REACTIONS (2)
  - Dyskinesia [None]
  - Choreoathetosis [None]

NARRATIVE: CASE EVENT DATE: 20140819
